FAERS Safety Report 10863543 (Version 1)
Quarter: 2015Q1

REPORT INFORMATION
  Report Type: Report from Study
  Country: CA (occurrence: CA)
  Receive Date: 20150224
  Receipt Date: 20150224
  Transmission Date: 20150721
  Serious: Yes (Hospitalization)
  Sender: FDA-Public Use
  Company Number: CA-JNJFOC-20150213056

PATIENT
  Age: 26 Year
  Sex: Male
  Weight: 60 kg

DRUGS (1)
  1. REMICADE [Suspect]
     Active Substance: INFLIXIMAB
     Indication: ANKYLOSING SPONDYLITIS
     Route: 042
     Dates: start: 201410

REACTIONS (5)
  - Vomiting [Unknown]
  - Road traffic accident [Unknown]
  - Abdominal discomfort [Unknown]
  - Upper gastrointestinal haemorrhage [Unknown]
  - Head injury [Unknown]

NARRATIVE: CASE EVENT DATE: 20150201
